FAERS Safety Report 19957131 (Version 1)
Quarter: 2021Q4

REPORT INFORMATION
  Report Type: Spontaneous
  Country: BE (occurrence: BE)
  Receive Date: 20211014
  Receipt Date: 20211014
  Transmission Date: 20220303
  Serious: Yes (Other)
  Sender: FDA-Public Use
  Company Number: BE-BAYER-2021A226292

PATIENT
  Age: 82 Year
  Sex: Female

DRUGS (1)
  1. STIVARGA [Suspect]
     Active Substance: REGORAFENIB
     Dosage: UNK

REACTIONS (3)
  - Hallucination [None]
  - Metastases to liver [None]
  - Hepatotoxicity [None]

NARRATIVE: CASE EVENT DATE: 20200901
